FAERS Safety Report 6121630-5 (Version None)
Quarter: 2009Q1

REPORT INFORMATION
  Report Type: 
  Country: None (occurrence: None)
  Receive Date: 20090317
  Receipt Date: 20090309
  Transmission Date: 20090719
  Serious: Yes (Hospitalization, Other)
  Sender: FDA-Public Use
  Company Number: PHHY2009FR08480

PATIENT
  Sex: Female

DRUGS (5)
  1. VOLTARENE [Suspect]
     Indication: OSTEOARTHRITIS
     Dosage: 25 MG, QD
     Route: 048
     Dates: end: 20090204
  2. PLAVIX [Interacting]
     Indication: ARTERITIS
     Dosage: 75 MG, QD
     Route: 048
     Dates: end: 20090204
  3. ZYLORIC [Concomitant]
     Dosage: UNK
     Route: 048
  4. PARIET [Concomitant]
     Dosage: 20 MG, QD
     Route: 048
  5. EFFERALGAN [Concomitant]
     Dosage: 1 G, QD
     Dates: end: 20090204

REACTIONS (6)
  - ASTHENIA [None]
  - CYSTITIS ESCHERICHIA [None]
  - DIVERTICULUM INTESTINAL [None]
  - DYSPNOEA [None]
  - IRON DEFICIENCY ANAEMIA [None]
  - OCCULT BLOOD [None]
